FAERS Safety Report 6825974-0 (Version None)
Quarter: 2010Q3

REPORT INFORMATION
  Report Type: 
  Country: None (occurrence: None)
  Receive Date: 20100709
  Receipt Date: 20100517
  Transmission Date: 20110219
  Serious: No
  Sender: FDA-Public Use
  Company Number: A0860020A

PATIENT
  Age: 46 Year
  Sex: Male

DRUGS (5)
  1. REQUIP XL [Suspect]
     Indication: PARKINSON'S DISEASE
     Dosage: 2MG TWICE PER DAY
     Route: 048
     Dates: start: 20090901
  2. SINEMET [Concomitant]
  3. ENALAPRIL MALEATE [Concomitant]
  4. COREG [Concomitant]
  5. ASPIRIN [Concomitant]

REACTIONS (2)
  - DRUG INEFFECTIVE [None]
  - MEDICATION RESIDUE [None]
